FAERS Safety Report 25396384 (Version 1)
Quarter: 2025Q2

REPORT INFORMATION
  Report Type: Spontaneous
  Country: US (occurrence: None)
  Receive Date: 20250603
  Receipt Date: 20250603
  Transmission Date: 20250717
  Serious: Yes (Disabling)
  Sender: FDA-CTU
  Company Number: None

PATIENT
  Age: 64 Year
  Sex: Female
  Weight: 60.75 kg

DRUGS (13)
  1. PAXIL [Suspect]
     Active Substance: PAROXETINE HYDROCHLORIDE
     Indication: Depression
  2. PAXIL [Suspect]
     Active Substance: PAROXETINE HYDROCHLORIDE
     Indication: Anxiety
  3. LEXAPRO [Suspect]
     Active Substance: ESCITALOPRAM OXALATE
  4. WELLBUTRIN [Suspect]
     Active Substance: BUPROPION HYDROCHLORIDE
  5. PROZAC [Suspect]
     Active Substance: FLUOXETINE HYDROCHLORIDE
  6. REMERON [Suspect]
     Active Substance: MIRTAZAPINE
  7. EFFEXOR [Suspect]
     Active Substance: VENLAFAXINE HYDROCHLORIDE
  8. LAMICTAL [Suspect]
     Active Substance: LAMOTRIGINE
  9. PREGESTERONE [Concomitant]
  10. ESTRADIOL [Concomitant]
     Active Substance: ESTRADIOL
  11. LOSARTAN [Concomitant]
     Active Substance: LOSARTAN
  12. KAVA [Concomitant]
     Active Substance: PIPER METHYSTICUM ROOT
  13. MAGNESIUM [Concomitant]
     Active Substance: MAGNESIUM

REACTIONS (26)
  - Drug titration [None]
  - Drug titration error [None]
  - Feeling abnormal [None]
  - Suicidal ideation [None]
  - Panic attack [None]
  - Electric shock sensation [None]
  - Anxiety [None]
  - Fear [None]
  - Symptom recurrence [None]
  - Withdrawal syndrome [None]
  - Palpitations [None]
  - Vertigo [None]
  - Pain [None]
  - Myalgia [None]
  - Exercise tolerance decreased [None]
  - Stress [None]
  - Temperature regulation disorder [None]
  - Histamine level increased [None]
  - Burning sensation [None]
  - Pruritus [None]
  - Rash [None]
  - Scab [None]
  - Akathisia [None]
  - Sensory disturbance [None]
  - Restlessness [None]
  - Dependence [None]
